FAERS Safety Report 25928767 (Version 1)
Quarter: 2025Q4

REPORT INFORMATION
  Report Type: Spontaneous
  Country: US (occurrence: US)
  Receive Date: 20251016
  Receipt Date: 20251016
  Transmission Date: 20260117
  Serious: Yes (Hospitalization, Other)
  Sender: CHEPLAPHARM
  Company Number: JP-CHEPLA-2025011813

PATIENT
  Sex: Male

DRUGS (27)
  1. OLANZAPINE [Suspect]
     Active Substance: OLANZAPINE
     Indication: Psychotic disorder
     Dosage: 10 MG P0 Q HS; 10 MG P.O. Q H.S. X 90
     Route: 048
  2. OLANZAPINE [Suspect]
     Active Substance: OLANZAPINE
     Indication: Schizoaffective disorder
     Dosage: 10 MG P0 Q HS; 10 MG P.O. Q H.S. X 90
     Route: 048
  3. OLANZAPINE [Suspect]
     Active Substance: OLANZAPINE
     Indication: Psychotic disorder
     Dosage: DAILY DOSE: 15 MILLIGRAM
     Route: 048
  4. OLANZAPINE [Suspect]
     Active Substance: OLANZAPINE
     Indication: Schizoaffective disorder
     Dosage: DAILY DOSE: 15 MILLIGRAM
     Route: 048
  5. QUETIAPINE [Suspect]
     Active Substance: QUETIAPINE
     Indication: Schizoaffective disorder
     Dosage: 75-100 MG; NIGHTLY
     Route: 048
     Dates: start: 20220907, end: 20221106
  6. QUETIAPINE [Suspect]
     Active Substance: QUETIAPINE
     Indication: Schizoaffective disorder
     Dosage: DAILY DOSE: 10 MILLIGRAM
  7. GEODON [Suspect]
     Active Substance: ZIPRASIDONE HYDROCHLORIDE\ZIPRASIDONE MESYLATE
  8. TRILAFON [Concomitant]
     Active Substance: PERPHENAZINE
     Dosage: BID?DAILY DOSE: 24 MILLIGRAM
     Route: 048
  9. KEMADRIN [Concomitant]
     Active Substance: PROCYCLIDINE HYDROCHLORIDE
     Dosage: 5MG PO Q HS
     Route: 048
  10. LIPITOR [Concomitant]
     Active Substance: ATORVASTATIN CALCIUM
     Indication: Hyperlipidaemia
     Dosage: BEDTIME?DAILY DOSE: 10 MILLIGRAM
     Dates: start: 20220819
  11. LIPITOR [Concomitant]
     Active Substance: ATORVASTATIN CALCIUM
     Indication: Hyperlipidaemia
     Dosage: EVENING?DAILY DOSE: 40 MILLIGRAM
     Route: 048
     Dates: start: 20250517
  12. POLYETHYLENE GLYCOL 17 [Concomitant]
     Indication: Constipation
     Dosage: 3350 MIX 1 PACKET AND TAKE ORALLY ONCE DAILY AS NEEDED
  13. ASPIRIN [Concomitant]
     Active Substance: ASPIRIN
     Dosage: ENETERIC COATED TABLET?DAILY DOSE: 81 MILLIGRAM
     Route: 048
  14. TOPROL XL [Concomitant]
     Active Substance: METOPROLOL SUCCINATE
     Dosage: NIGHTLY?DAILY DOSE: 1 DOSAGE FORM
     Route: 048
  15. Omega-3- DHA-EPA-Fish oil [Concomitant]
     Dosage: NIGHTLY?DAILY DOSE: 1 DOSAGE FORM
     Route: 048
  16. ALPHA LIPOIC ACID [Concomitant]
     Active Substance: .ALPHA.-LIPOIC ACID
     Dosage: NIGHTLY?DAILY DOSE: 1 DOSAGE FORM
     Route: 048
  17. VITAMIN C [Concomitant]
     Active Substance: ASCORBIC ACID
     Dosage: NIGHTLY
     Route: 048
  18. BETAINE HYDROCHLORIDE [Concomitant]
     Active Substance: BETAINE HYDROCHLORIDE
     Dosage: NIHTLY?DAILY DOSE: 1000 MILLIGRAM
     Route: 048
  19. VITAMIN D3 [Concomitant]
     Active Substance: CHOLECALCIFEROL
     Dosage: EVERY OTHER DAY
     Route: 048
  20. COENZYME Q10 [Concomitant]
     Active Substance: DIETARY SUPPLEMENT\UBIDECARENONE
     Dosage: NIGHTLY?DAILY DOSE: 200 MILLIGRAM
     Route: 048
  21. MOTRIN [Concomitant]
     Active Substance: IBUPROFEN
     Indication: Pain
     Dosage: AS NEEDED?DAILY DOSE: 1600 MILLIGRAM
     Route: 048
  22. Lithium Orate [Concomitant]
     Dosage: DAILY DOSE: 10 MILLIGRAM
     Route: 048
  23. PETROLATUM [Concomitant]
     Active Substance: PETROLATUM
     Indication: Dry skin
     Route: 061
  24. VITAMINS [Concomitant]
     Active Substance: VITAMINS
     Dosage: NIGHTLY?DAILY DOSE: 1 DOSAGE FORM
     Route: 048
  25. QUERCETIN [Concomitant]
     Active Substance: QUERCETIN
     Dosage: DAILY DOSE: 500 MILLIGRAM
     Route: 048
  26. DIETARY SUPPLEMENT\RESVERATROL [Concomitant]
     Active Substance: DIETARY SUPPLEMENT\RESVERATROL
     Dosage: NIGHTLY?DAILY DOSE: 1 DOSAGE FORM
     Route: 048
  27. PLAVIX [Concomitant]
     Active Substance: CLOPIDOGREL BISULFATE
     Dosage: DAILY DOSE: 1 DOSAGE FORM
     Route: 048
     Dates: start: 20250519, end: 20250618

REACTIONS (11)
  - Suicidal ideation [Unknown]
  - Hypoaesthesia [Unknown]
  - Facial paralysis [Unknown]
  - Encephalomalacia [Unknown]
  - Headache [Unknown]
  - Dizziness [Unknown]
  - Somnolence [Unknown]
  - Weight increased [Unknown]
  - Treatment noncompliance [Unknown]
  - Dysarthria [Unknown]
  - Chest pain [Unknown]
